FAERS Safety Report 5047307-5 (Version None)
Quarter: 2006Q3

REPORT INFORMATION
  Report Type: 
  Country: None (occurrence: None)
  Receive Date: 20060711
  Receipt Date: 20060704
  Transmission Date: 20061208
  Serious: Yes (Death)
  Sender: FDA-Public Use
  Company Number: 2006AP03043

PATIENT
  Age: 34 Year
  Sex: Female

DRUGS (4)
  1. SEROQUEL [Suspect]
     Route: 048
  2. LODOPIN [Suspect]
  3. BROMAZEPAM [Concomitant]
  4. FLUNITRAZEPAM [Concomitant]

REACTIONS (2)
  - ACUTE RESPIRATORY FAILURE [None]
  - SHOCK [None]
